FAERS Safety Report 9928284 (Version 3)
Quarter: 2014Q1

REPORT INFORMATION
  Report Type: Spontaneous
  Country: US (occurrence: US)
  Receive Date: 20140227
  Receipt Date: 20140313
  Transmission Date: 20141002
  Serious: Yes (Other)
  Sender: FDA-Public Use
  Company Number: US-DRREDDYS-USA/USA/14/0038454

PATIENT
  Age: 76 Year
  Sex: Male

DRUGS (4)
  1. NATEGLINIDE TABLETS [Suspect]
     Indication: DIABETES MELLITUS
     Route: 048
     Dates: start: 20140222, end: 20140225
  2. COREG [Concomitant]
     Indication: PRODUCT USED FOR UNKNOWN INDICATION
     Route: 065
  3. HYTRIN [Concomitant]
     Indication: PRODUCT USED FOR UNKNOWN INDICATION
     Route: 065
  4. PROSCAR [Concomitant]
     Indication: PROSTATIC DISORDER
     Route: 065

REACTIONS (2)
  - Choking [Recovered/Resolved]
  - Product solubility abnormal [Unknown]
